FAERS Safety Report 9068407 (Version 1)
Quarter: 2013Q1

REPORT INFORMATION
  Report Type: Spontaneous
  Country: FR (occurrence: FR)
  Receive Date: 20130128
  Receipt Date: 20130128
  Transmission Date: 20140127
  Serious: Yes (Other)
  Sender: FDA-Public Use
  Company Number: PHHY2013FR006991

PATIENT
  Sex: Male
  Weight: 2.55 kg

DRUGS (4)
  1. VORICONAZOLE [Suspect]
     Dosage: MATERNAL DOSE: 200MG TWICE DAILY
     Route: 064
  2. CICLOSPORIN [Suspect]
     Dosage: MATERNAL DOSE: 150MG/DAY
     Route: 064
  3. IMMUNOGLOBULINS [Suspect]
     Dosage: MATERNAL DOSE: 1G/KG/DAY
     Route: 064
  4. AMPHOTERICIN B [Suspect]
     Dosage: MATERNAL DOSE: 3MG/KG/DAY
     Route: 064

REACTIONS (3)
  - Premature baby [Unknown]
  - Foetal exposure during pregnancy [Unknown]
  - Maternal drugs affecting foetus [None]
